FAERS Safety Report 5259000-4 (Version None)
Quarter: 2007Q1

REPORT INFORMATION
  Report Type: 
  Country: None (occurrence: None)
  Receive Date: 20070305
  Receipt Date: 20070221
  Transmission Date: 20070707
  Serious: Yes (Hospitalization)
  Sender: FDA-Public Use
  Company Number: 2006BI013452

PATIENT
  Age: 67 Year
  Sex: Female

DRUGS (1)
  1. NATALIZUMAB [Suspect]
     Indication: MULTIPLE SCLEROSIS
     Dosage: 300 MG; QM; IV
     Route: 042
     Dates: start: 20060913, end: 20061101

REACTIONS (6)
  - CLOSTRIDIAL INFECTION [None]
  - GASTROINTESTINAL HAEMORRHAGE [None]
  - PETIT MAL EPILEPSY [None]
  - PNEUMONIA [None]
  - RECTAL HAEMORRHAGE [None]
  - URINARY BLADDER HAEMORRHAGE [None]
